FAERS Safety Report 15251423 (Version 1)
Quarter: 2018Q3

REPORT INFORMATION
  Report Type: Spontaneous
  Country: CN (occurrence: CN)
  Receive Date: 20180807
  Receipt Date: 20180807
  Transmission Date: 20181010
  Serious: Yes (Life-Threatening, Disabling)
  Sender: FDA-Public Use
  Company Number: CN-BAYER-2018-144509

PATIENT
  Age: 63 Year
  Sex: Female
  Weight: 60 kg

DRUGS (1)
  1. AVELOX [Suspect]
     Active Substance: MOXIFLOXACIN HYDROCHLORIDE
     Indication: LUNG INFECTION
     Dosage: 0.4 G, QD
     Route: 041
     Dates: start: 20180605, end: 20180605

REACTIONS (3)
  - Loss of consciousness [Recovering/Resolving]
  - Ventricular fibrillation [Recovering/Resolving]
  - Urinary incontinence [Recovering/Resolving]

NARRATIVE: CASE EVENT DATE: 20180605
